FAERS Safety Report 15110020 (Version 3)
Quarter: 2018Q3

REPORT INFORMATION
  Report Type: Spontaneous
  Country: CZ (occurrence: CZ)
  Receive Date: 20180705
  Receipt Date: 20180925
  Transmission Date: 20181010
  Serious: Yes (Death, Other)
  Sender: FDA-Public Use
  Company Number: CZ-MYLANLABS-2018M1048293

PATIENT
  Age: 12 Month
  Sex: Male
  Weight: 1.3 kg

DRUGS (2)
  1. PREDNISONE. [Suspect]
     Active Substance: PREDNISONE
     Indication: IMMUNOSUPPRESSION
     Dosage: 5 MG, QD
     Route: 048
     Dates: start: 20170609, end: 20170727
  2. AUGMENTIN [Concomitant]
     Active Substance: AMOXICILLIN\CLAVULANATE POTASSIUM
     Indication: PRODUCT USED FOR UNKNOWN INDICATION
     Dosage: UNK

REACTIONS (7)
  - Pulmonary hypertension [Fatal]
  - Drug ineffective [Fatal]
  - Cardiac failure [Fatal]
  - Pulmonary vein stenosis [Fatal]
  - Pneumonia [Fatal]
  - Respiratory failure [Fatal]
  - Respiratory tract infection [Fatal]
